FAERS Safety Report 7777703-4 (Version None)
Quarter: 2011Q3

REPORT INFORMATION
  Report Type: 
  Country: None (occurrence: None)
  Receive Date: 20110926
  Receipt Date: 20110920
  Transmission Date: 20111222
  Serious: Yes (Hospitalization)
  Sender: FDA-Public Use
  Company Number: US-BIOGENIDEC-2011BI016308

PATIENT
  Age: 49 Year
  Sex: Female

DRUGS (1)
  1. TYSABRI [Suspect]
     Indication: MULTIPLE SCLEROSIS
     Route: 042
     Dates: start: 20101028, end: 20110426

REACTIONS (9)
  - FATIGUE [None]
  - COORDINATION ABNORMAL [None]
  - HYPERSENSITIVITY [None]
  - MENTAL IMPAIRMENT [None]
  - CYANOSIS [None]
  - VOMITING [None]
  - NAUSEA [None]
  - FALL [None]
  - PAIN [None]
